FAERS Safety Report 17414071 (Version 3)
Quarter: 2020Q1

REPORT INFORMATION
  Report Type: Spontaneous
  Country: US (occurrence: US)
  Receive Date: 20200213
  Receipt Date: 20200330
  Transmission Date: 20200409
  Serious: No
  Sender: FDA-Public Use
  Company Number: US-PFIZER INC-2020062799

PATIENT
  Age: 43 Year
  Sex: Female
  Weight: 70.31 kg

DRUGS (4)
  1. ACIDOPHILUS [Concomitant]
     Active Substance: LACTOBACILLUS ACIDOPHILUS
     Indication: CONSTIPATION
     Dosage: 1 DF, DAILY (2BILLION CULTURES PER TABLET)
  2. EUCRISA [Suspect]
     Active Substance: CRISABOROLE
     Indication: ECZEMA
  3. EUCRISA [Suspect]
     Active Substance: CRISABOROLE
     Indication: SYSTEMIC LUPUS ERYTHEMATOSUS
     Dosage: 2.5 G, 2X/DAY
     Route: 061
     Dates: start: 20200207, end: 20200208
  4. TYLENOL [Concomitant]
     Active Substance: ACETAMINOPHEN
     Indication: ARTHRALGIA
     Dosage: 500 MG, AS NEEDED

REACTIONS (6)
  - Heart rate decreased [Unknown]
  - Drug effective for unapproved indication [Unknown]
  - Dyspnoea [Unknown]
  - Contraindicated product administered [Unknown]
  - Blood pressure decreased [Recovered/Resolved]
  - Tinnitus [Unknown]

NARRATIVE: CASE EVENT DATE: 20200208
